FAERS Safety Report 7600097-1 (Version None)
Quarter: 2011Q3

REPORT INFORMATION
  Report Type: 
  Country: None (occurrence: None)
  Receive Date: 20110711
  Receipt Date: 20110629
  Transmission Date: 20111222
  Serious: Yes (Hospitalization)
  Sender: FDA-Public Use
  Company Number: JP-JNJFOC-20110701383

PATIENT
  Sex: Female
  Weight: 35 kg

DRUGS (1)
  1. REMICADE [Suspect]
     Indication: RHEUMATOID ARTHRITIS
     Dosage: FIRST DOSE, TOTAL NUMBER OF DOSES WAS UNSPECIFIED
     Route: 042
     Dates: start: 20110530

REACTIONS (1)
  - LYMPHOMA [None]
